FAERS Safety Report 17098384 (Version 2)
Quarter: 2020Q1

REPORT INFORMATION
  Report Type: Spontaneous
  Country: BE (occurrence: BE)
  Receive Date: 20191202
  Receipt Date: 20200106
  Transmission Date: 20200409
  Serious: Yes (Death)
  Sender: FDA-Public Use
  Company Number: BE-009507513-1911BEL010816

PATIENT
  Age: 66 Year
  Sex: Female

DRUGS (7)
  1. ALIMTA [Concomitant]
     Active Substance: PEMETREXED DISODIUM
     Dosage: 865 MILLIGRAM, Q3W
     Route: 042
     Dates: start: 20190905, end: 20191017
  2. KEYTRUDA [Suspect]
     Active Substance: PEMBROLIZUMAB
     Indication: METASTASES TO CENTRAL NERVOUS SYSTEM
     Dosage: 200 MILLIGRAM, Q3W
     Route: 042
     Dates: start: 20190905, end: 20191017
  3. NEULASTA [Concomitant]
     Active Substance: PEGFILGRASTIM
     Dosage: 6 MILLIGRAM, Q3W
     Route: 058
     Dates: start: 20190905, end: 20191017
  4. CARBOPLATIN. [Concomitant]
     Active Substance: CARBOPLATIN
     Dosage: 362 MILLIGRAM, Q3W
     Route: 042
     Dates: start: 20190905, end: 20191017
  5. KEYTRUDA [Suspect]
     Active Substance: PEMBROLIZUMAB
     Indication: LUNG CARCINOMA CELL TYPE UNSPECIFIED STAGE IV
  6. NEUROBION (CYANOCOBALAMIN (+) PYRIDOXINE (+) THIAMINE) [Concomitant]
     Dosage: 1 DOSAGE FORM, EVERY 9 WEEKS
     Route: 030
  7. RANITIDINE. [Concomitant]
     Active Substance: RANITIDINE
     Dosage: 300 MILLIGRAM, QD
     Route: 042

REACTIONS (14)
  - Haemophagocytic lymphohistiocytosis [Fatal]
  - Sedation [Fatal]
  - Thrombocytopenia [Fatal]
  - Confusional state [Fatal]
  - Renal failure [Fatal]
  - Hepatic function abnormal [Fatal]
  - Discomfort [Fatal]
  - Electrolyte imbalance [Fatal]
  - Ecchymosis [Fatal]
  - Muscle twitching [Fatal]
  - Blood lactate dehydrogenase increased [Fatal]
  - Serum ferritin increased [Fatal]
  - Skin discolouration [Fatal]
  - Pancytopenia [Fatal]

NARRATIVE: CASE EVENT DATE: 20191024
